FAERS Safety Report 10540107 (Version 1)
Quarter: 2014Q4

REPORT INFORMATION
  Report Type: Spontaneous
  Country: US (occurrence: None)
  Receive Date: 20141023
  Receipt Date: 20141023
  Transmission Date: 20150529
  Serious: No
  Sender: FDA-Public Use
  Company Number: None

PATIENT
  Age: 53 Year
  Sex: Female
  Weight: 48.08 kg

DRUGS (3)
  1. PERCOCET [Suspect]
     Active Substance: ACETAMINOPHEN\OXYCODONE HYDROCHLORIDE
     Dosage: 1 TABLET FOUR TIMES DAILY TAKEN BY MOUTH
     Route: 048
     Dates: start: 20140813, end: 20141022
  2. PERCOCET [Suspect]
     Active Substance: ACETAMINOPHEN\OXYCODONE HYDROCHLORIDE
     Indication: THORACIC VERTEBRAL FRACTURE
     Dosage: 1 TABLET FOUR TIMES DAILY TAKEN BY MOUTH
     Route: 048
     Dates: start: 20140813, end: 20141022
  3. PERCOCET [Suspect]
     Active Substance: ACETAMINOPHEN\OXYCODONE HYDROCHLORIDE
     Indication: SPINAL COLUMN STENOSIS
     Dosage: 1 TABLET FOUR TIMES DAILY TAKEN BY MOUTH
     Route: 048
     Dates: start: 20140813, end: 20141022

REACTIONS (5)
  - Product substitution issue [None]
  - Drug effect decreased [None]
  - Product quality issue [None]
  - Pain [None]
  - Product formulation issue [None]

NARRATIVE: CASE EVENT DATE: 20141022
